FAERS Safety Report 8457051-X (Version None)
Quarter: 2012Q2

REPORT INFORMATION
  Report Type: 
  Country: None (occurrence: None)
  Receive Date: 20120614
  Receipt Date: 20120531
  Transmission Date: 20120825
  Serious: Yes (Other)
  Sender: FDA-Public Use
  Company Number: NGX_01047_2012

PATIENT
  Sex: Male
  Weight: 65 kg

DRUGS (2)
  1. LIDOCAINE [Concomitant]
  2. QUTENZA [Suspect]
     Indication: POST HERPETIC NEURALGIA
     Dosage: (0.5 DF, [PATCH, APPLIED TO FACE] TOPICAL)
     Route: 061

REACTIONS (3)
  - HYPERTENSION [None]
  - DRUG INEFFECTIVE [None]
  - OFF LABEL USE [None]
